FAERS Safety Report 21669034 (Version 2)
Quarter: 2022Q4

REPORT INFORMATION
  Report Type: Spontaneous
  Country: GB (occurrence: GB)
  Receive Date: 20221201
  Receipt Date: 20221221
  Transmission Date: 20230113
  Serious: No
  Sender: FDA-Public Use
  Company Number: GB-JNJFOC-20220845368

PATIENT
  Age: 40 Year
  Sex: Female
  Weight: 91 kg

DRUGS (66)
  1. BORTEZOMIB [Suspect]
     Active Substance: BORTEZOMIB
     Indication: Plasma cell myeloma
     Dosage: CYCLE 10
     Route: 065
     Dates: start: 20210421
  2. BORTEZOMIB [Suspect]
     Active Substance: BORTEZOMIB
     Dosage: CYCLE 8
     Route: 065
     Dates: start: 20210224
  3. BORTEZOMIB [Suspect]
     Active Substance: BORTEZOMIB
     Dosage: CYCLE 2
     Route: 065
     Dates: start: 20200619
  4. BORTEZOMIB [Suspect]
     Active Substance: BORTEZOMIB
     Dosage: CYCLE 13
     Route: 065
     Dates: start: 20210923
  5. BORTEZOMIB [Suspect]
     Active Substance: BORTEZOMIB
     Dosage: CYCLE 4
     Route: 065
     Dates: start: 20200819
  6. BORTEZOMIB [Suspect]
     Active Substance: BORTEZOMIB
     Dosage: CYCLE 12
     Route: 065
     Dates: start: 20210616
  7. BORTEZOMIB [Suspect]
     Active Substance: BORTEZOMIB
     Dosage: CYCLE 7
     Route: 065
     Dates: start: 20210127
  8. BORTEZOMIB [Suspect]
     Active Substance: BORTEZOMIB
     Dosage: CYCLE 9
     Route: 065
     Dates: start: 20210324
  9. BORTEZOMIB [Suspect]
     Active Substance: BORTEZOMIB
     Dosage: CYCLE 6
     Route: 065
     Dates: start: 20201230
  10. BORTEZOMIB [Suspect]
     Active Substance: BORTEZOMIB
     Dosage: CYCLE 3
     Route: 065
     Dates: start: 20200717
  11. BORTEZOMIB [Suspect]
     Active Substance: BORTEZOMIB
     Dosage: CYCLE 1
     Route: 065
     Dates: start: 20200522
  12. BORTEZOMIB [Suspect]
     Active Substance: BORTEZOMIB
     Dosage: CYCLE 5
     Route: 065
     Dates: start: 20200911
  13. BORTEZOMIB [Suspect]
     Active Substance: BORTEZOMIB
     Dosage: CYCLE 15
     Route: 065
     Dates: start: 20211124
  14. BORTEZOMIB [Suspect]
     Active Substance: BORTEZOMIB
     Dosage: CYCLE 11
     Route: 065
     Dates: start: 20210520
  15. BORTEZOMIB [Suspect]
     Active Substance: BORTEZOMIB
     Dosage: CYCLE 16
     Route: 065
     Dates: start: 20211222
  16. BORTEZOMIB [Suspect]
     Active Substance: BORTEZOMIB
     Dosage: CYCLE 14
     Route: 065
     Dates: start: 20211021
  17. DEXAMETHASONE [Suspect]
     Active Substance: DEXAMETHASONE
     Indication: Product used for unknown indication
     Dosage: CYCLE 15
     Route: 065
     Dates: start: 20211124
  18. DEXAMETHASONE [Suspect]
     Active Substance: DEXAMETHASONE
     Dosage: CYCLE 6
     Route: 065
     Dates: start: 20201230
  19. DEXAMETHASONE [Suspect]
     Active Substance: DEXAMETHASONE
     Dosage: CYCLE 10
     Route: 065
     Dates: start: 20210421
  20. DEXAMETHASONE [Suspect]
     Active Substance: DEXAMETHASONE
     Dosage: CYCLE 11
     Route: 065
     Dates: start: 20210520
  21. DEXAMETHASONE [Suspect]
     Active Substance: DEXAMETHASONE
     Dosage: CYCLE 13
     Route: 065
     Dates: start: 20210923
  22. DEXAMETHASONE [Suspect]
     Active Substance: DEXAMETHASONE
     Dosage: CYCLE 3
     Route: 065
     Dates: start: 20200717
  23. DEXAMETHASONE [Suspect]
     Active Substance: DEXAMETHASONE
     Dosage: CYCLE 1
     Route: 065
     Dates: start: 20200522
  24. DEXAMETHASONE [Suspect]
     Active Substance: DEXAMETHASONE
     Dosage: CYCLE 7
     Route: 065
     Dates: start: 20210127
  25. DEXAMETHASONE [Suspect]
     Active Substance: DEXAMETHASONE
     Dosage: CYCLE 9
     Route: 065
     Dates: start: 20210324
  26. DEXAMETHASONE [Suspect]
     Active Substance: DEXAMETHASONE
     Dosage: CYCLE 8
     Route: 065
     Dates: start: 20210224
  27. DEXAMETHASONE [Suspect]
     Active Substance: DEXAMETHASONE
     Dosage: CYCLE 16
     Route: 065
     Dates: start: 20211222
  28. DEXAMETHASONE [Suspect]
     Active Substance: DEXAMETHASONE
     Dosage: CYCLE 5
     Route: 065
     Dates: start: 20200911
  29. DEXAMETHASONE [Suspect]
     Active Substance: DEXAMETHASONE
     Dosage: CYCLE 4
     Route: 065
     Dates: start: 20200819
  30. DEXAMETHASONE [Suspect]
     Active Substance: DEXAMETHASONE
     Dosage: CYCLE 2
     Route: 065
     Dates: start: 20200619
  31. DEXAMETHASONE [Suspect]
     Active Substance: DEXAMETHASONE
     Dosage: CYCLE 14
     Route: 065
     Dates: start: 20211021
  32. DEXAMETHASONE [Suspect]
     Active Substance: DEXAMETHASONE
     Dosage: CYCLE 12
     Route: 065
     Dates: start: 20210616
  33. PANOBINOSTAT [Suspect]
     Active Substance: PANOBINOSTAT
     Indication: Plasma cell myeloma
     Dosage: CYCLE 15
     Route: 065
     Dates: start: 20211124
  34. PANOBINOSTAT [Suspect]
     Active Substance: PANOBINOSTAT
     Dosage: CYCLE 1
     Route: 065
     Dates: start: 20200522
  35. PANOBINOSTAT [Suspect]
     Active Substance: PANOBINOSTAT
     Dosage: CYCLE 13
     Route: 065
     Dates: start: 20210923
  36. PANOBINOSTAT [Suspect]
     Active Substance: PANOBINOSTAT
     Dosage: CYCLE 14
     Route: 065
     Dates: start: 20211021
  37. PANOBINOSTAT [Suspect]
     Active Substance: PANOBINOSTAT
     Dosage: CYCLE 10
     Route: 065
     Dates: start: 20210421
  38. PANOBINOSTAT [Suspect]
     Active Substance: PANOBINOSTAT
     Dosage: CYCLE 5
     Route: 065
     Dates: start: 20200911
  39. PANOBINOSTAT [Suspect]
     Active Substance: PANOBINOSTAT
     Dosage: CYCLE 8
     Route: 065
     Dates: start: 20210224
  40. PANOBINOSTAT [Suspect]
     Active Substance: PANOBINOSTAT
     Dosage: CYCLE 4
     Route: 065
     Dates: start: 20200819
  41. PANOBINOSTAT [Suspect]
     Active Substance: PANOBINOSTAT
     Dosage: CYCLE 2
     Route: 065
     Dates: start: 20200619
  42. PANOBINOSTAT [Suspect]
     Active Substance: PANOBINOSTAT
     Dosage: CYCLE 11
     Route: 065
     Dates: start: 20210520
  43. PANOBINOSTAT [Suspect]
     Active Substance: PANOBINOSTAT
     Dosage: CYCLE 9
     Route: 065
     Dates: start: 20210324
  44. PANOBINOSTAT [Suspect]
     Active Substance: PANOBINOSTAT
     Dosage: CYCLE 3
     Route: 065
     Dates: start: 20200717
  45. PANOBINOSTAT [Suspect]
     Active Substance: PANOBINOSTAT
     Dosage: CYCLE 6
     Route: 065
     Dates: start: 20201230
  46. PANOBINOSTAT [Suspect]
     Active Substance: PANOBINOSTAT
     Dosage: CYCLE 7
     Route: 065
     Dates: start: 20210127
  47. PANOBINOSTAT [Suspect]
     Active Substance: PANOBINOSTAT
     Dosage: CYCLE 12
     Route: 065
     Dates: start: 20210616
  48. PANOBINOSTAT [Suspect]
     Active Substance: PANOBINOSTAT
     Dosage: CYCLE 16
     Route: 065
     Dates: start: 20211222
  49. VELCADE [Suspect]
     Active Substance: BORTEZOMIB
     Indication: Plasma cell myeloma
     Dosage: CYCLE 8
     Route: 065
     Dates: start: 20210224
  50. VELCADE [Suspect]
     Active Substance: BORTEZOMIB
     Dosage: CYCLE 15
     Route: 065
     Dates: start: 20211124
  51. VELCADE [Suspect]
     Active Substance: BORTEZOMIB
     Dosage: CYCLE 2
     Route: 065
     Dates: start: 20200619
  52. VELCADE [Suspect]
     Active Substance: BORTEZOMIB
     Dosage: CYCLE 5
     Route: 065
     Dates: start: 20200911
  53. VELCADE [Suspect]
     Active Substance: BORTEZOMIB
     Dosage: CYCLE 6
     Route: 065
     Dates: start: 20201230
  54. VELCADE [Suspect]
     Active Substance: BORTEZOMIB
     Dosage: CYCLE 16
     Route: 065
     Dates: start: 20211222
  55. VELCADE [Suspect]
     Active Substance: BORTEZOMIB
     Dosage: CYCLE 7
     Route: 065
     Dates: start: 20210127
  56. VELCADE [Suspect]
     Active Substance: BORTEZOMIB
     Dosage: CYCLE 12
     Route: 065
     Dates: start: 20210616
  57. VELCADE [Suspect]
     Active Substance: BORTEZOMIB
     Dosage: CYCLE 4
     Route: 065
     Dates: start: 20200819
  58. VELCADE [Suspect]
     Active Substance: BORTEZOMIB
     Dosage: CYCLE 14
     Route: 065
     Dates: start: 20211021
  59. VELCADE [Suspect]
     Active Substance: BORTEZOMIB
     Dosage: CYCLE 10
     Route: 065
     Dates: start: 20210421
  60. VELCADE [Suspect]
     Active Substance: BORTEZOMIB
     Dosage: CYCLE 11
     Route: 065
     Dates: start: 20210520
  61. VELCADE [Suspect]
     Active Substance: BORTEZOMIB
     Dosage: CYCLE 1
     Route: 065
     Dates: start: 20200522
  62. VELCADE [Suspect]
     Active Substance: BORTEZOMIB
     Dosage: CYCLE 9
     Route: 065
     Dates: start: 20210324
  63. VELCADE [Suspect]
     Active Substance: BORTEZOMIB
     Dosage: CYCLE 3
     Route: 065
     Dates: start: 20200717
  64. VELCADE [Suspect]
     Active Substance: BORTEZOMIB
     Dosage: CYCLE 13
     Route: 065
     Dates: start: 20210923
  65. LENOGRASTIM [Concomitant]
     Active Substance: LENOGRASTIM
     Indication: Peripheral sensory neuropathy
     Dosage: UNK
     Route: 065
     Dates: start: 20200819, end: 20210217
  66. LENOGRASTIM [Concomitant]
     Active Substance: LENOGRASTIM
     Indication: Neutropenia
     Dosage: UNK
     Route: 065
     Dates: start: 20210127

REACTIONS (6)
  - Swelling [Recovering/Resolving]
  - Feeling abnormal [Recovering/Resolving]
  - Breast abscess [Unknown]
  - Limb discomfort [Recovering/Resolving]
  - Back pain [Recovered/Resolved]
  - Fatigue [Unknown]

NARRATIVE: CASE EVENT DATE: 20200925
